FAERS Safety Report 7026304-4 (Version None)
Quarter: 2010Q4

REPORT INFORMATION
  Report Type: 
  Country: None (occurrence: None)
  Receive Date: 20101004
  Receipt Date: 20100924
  Transmission Date: 20110411
  Serious: Yes (Other)
  Sender: FDA-Public Use
  Company Number: JP-PFIZER INC-2010121819

PATIENT

DRUGS (2)
  1. SALAZOPYRIN [Suspect]
     Dosage: UNK
  2. MESALAZINE [Suspect]
     Dosage: UNK

REACTIONS (1)
  - EOSINOPHILIC PNEUMONIA [None]
